FAERS Safety Report 18647233 (Version 2)
Quarter: 2021Q3

REPORT INFORMATION
  Report Type: Spontaneous
  Country: US (occurrence: US)
  Receive Date: 20201222
  Receipt Date: 20210906
  Transmission Date: 20211014
  Serious: Yes (Death, Other)
  Sender: FDA-Public Use
  Company Number: US-SA-2020SA361729

PATIENT
  Age: 49 Year
  Sex: Female
  Weight: 94.5 kg

DRUGS (4)
  1. HALOPERIDOL. [Concomitant]
     Active Substance: HALOPERIDOL
     Dosage: UNK
  2. DIPHENYLHYDANTOIN [Concomitant]
     Active Substance: PHENYTOIN
     Dosage: UNK
  3. DIPHENHYDRAMINE. [Suspect]
     Active Substance: DIPHENHYDRAMINE
     Indication: SUICIDE ATTEMPT
     Dosage: UNK UNK, 1X
  4. MICRONASE [Concomitant]
     Active Substance: GLYBURIDE
     Dosage: UNK

REACTIONS (5)
  - Toxicity to various agents [Fatal]
  - Visceral congestion [Fatal]
  - Myocardial fibrosis [Fatal]
  - Intentional overdose [Fatal]
  - Pulmonary oedema [Fatal]
